FAERS Safety Report 9629242 (Version 1)
Quarter: 2013Q4

REPORT INFORMATION
  Report Type: Spontaneous
  Country: US (occurrence: US)
  Receive Date: 20131017
  Receipt Date: 20131017
  Transmission Date: 20140711
  Serious: No
  Sender: FDA-Public Use
  Company Number: US-ASTRAZENECA-2013SE63299

PATIENT
  Age: 47 Year
  Sex: Female
  Weight: 79.4 kg

DRUGS (3)
  1. CRESTOR [Suspect]
     Indication: HYPERLIPIDAEMIA
     Route: 048
     Dates: start: 201306
  2. ABILIFY [Concomitant]
     Indication: SCHIZOAFFECTIVE DISORDER
     Dosage: UNK UNK
     Route: 048
  3. TEGRETOL [Concomitant]
     Indication: SCHIZOAFFECTIVE DISORDER
     Dosage: UNK UNK
     Route: 048

REACTIONS (1)
  - Abdominal distension [Not Recovered/Not Resolved]
